FAERS Safety Report 9418593 (Version 2)
Quarter: 2013Q3

REPORT INFORMATION
  Report Type: Spontaneous
  Country: GB (occurrence: GB)
  Receive Date: 20130725
  Receipt Date: 20130828
  Transmission Date: 20140515
  Serious: Yes (Other)
  Sender: FDA-Public Use
  Company Number: GB-ROCHE-1252754

PATIENT
  Age: 31 Year
  Sex: Male
  Weight: 80 kg

DRUGS (2)
  1. ROACCUTANE [Suspect]
     Indication: ACNE
     Route: 048
     Dates: start: 20130530, end: 20130704
  2. ROACCUTANE [Suspect]
     Route: 048
     Dates: start: 20130704, end: 20130707

REACTIONS (1)
  - Gout [Recovered/Resolved]
